FAERS Safety Report 10206702 (Version 2)
Quarter: 2014Q2

REPORT INFORMATION
  Report Type: Spontaneous
  Country: BR (occurrence: BR)
  Receive Date: 20140530
  Receipt Date: 20140530
  Transmission Date: 20141212
  Serious: Yes (Other)
  Sender: FDA-Public Use
  Company Number: BR-SA-2013SA099501

PATIENT
  Sex: Female

DRUGS (1)
  1. LANTUS [Suspect]
     Indication: TYPE 1 DIABETES MELLITUS
     Route: 065

REACTIONS (2)
  - Exposure during pregnancy [Unknown]
  - Polyhydramnios [Unknown]
